FAERS Safety Report 15022306 (Version 1)
Quarter: 2018Q2

REPORT INFORMATION
  Report Type: Spontaneous
  Country: US (occurrence: US)
  Receive Date: 20180618
  Receipt Date: 20180618
  Transmission Date: 20180711
  Serious: Yes (Hospitalization)
  Sender: FDA-Public Use
  Company Number: US-BAYER-2018-112413

PATIENT
  Age: 56 Year
  Sex: Female
  Weight: 74.97 kg

DRUGS (2)
  1. TETRACAINE. [Suspect]
     Active Substance: TETRACAINE
  2. AFRIN ORIGINAL [Suspect]
     Active Substance: OXYMETAZOLINE HYDROCHLORIDE
     Indication: OFF LABEL USE
     Dosage: UNK
     Route: 055
     Dates: start: 20180410, end: 20180410

REACTIONS (4)
  - Off label use [Unknown]
  - Hypersensitivity [None]
  - Lung disorder [Recovered/Resolved]
  - Product use in unapproved indication [Unknown]

NARRATIVE: CASE EVENT DATE: 20180410
